FAERS Safety Report 6552748-0 (Version None)
Quarter: 2010Q1

REPORT INFORMATION
  Report Type: 
  Country: None (occurrence: None)
  Receive Date: 20100126
  Receipt Date: 20100118
  Transmission Date: 20100710
  Serious: Yes (Hospitalization, Other)
  Sender: FDA-Public Use
  Company Number: PHHO2009DE15668

PATIENT
  Sex: Female
  Weight: 65 kg

DRUGS (6)
  1. STI571/CGP57148B T35717+TAB [Suspect]
     Indication: COLORECTAL CANCER
     Dosage: 300 MG
     Route: 048
     Dates: start: 20090623, end: 20091124
  2. CAPECITABINE [Suspect]
     Indication: COLORECTAL CANCER
     Dosage: 3500 MG, UNK
     Route: 048
     Dates: start: 20090623, end: 20091124
  3. OXALIPLATIN [Suspect]
     Indication: COLORECTAL CANCER
     Dosage: 180 MG, UNK
     Route: 042
     Dates: start: 20090623, end: 20091210
  4. BEVACIZUMAB [Concomitant]
     Indication: COLORECTAL CANCER
     Dosage: 600 MG Q3WK
     Route: 042
     Dates: start: 20090623, end: 20091210
  5. METOCLOPRAMIDE HYDROCHLORIDE [Concomitant]
  6. FORTECORTIN [Concomitant]

REACTIONS (7)
  - BLOOD BILIRUBIN INCREASED [None]
  - DECREASED APPETITE [None]
  - ENDOSCOPIC RETROGRADE CHOLANGIOPANCREATOGRAPHY [None]
  - GENERAL PHYSICAL HEALTH DETERIORATION [None]
  - STENT PLACEMENT [None]
  - SURGERY [None]
  - VOMITING [None]
